FAERS Safety Report 6093184-3 (Version None)
Quarter: 2009Q1

REPORT INFORMATION
  Report Type: 
  Country: None (occurrence: None)
  Receive Date: 20090226
  Receipt Date: 20090217
  Transmission Date: 20090719
  Serious: Yes (Other)
  Sender: FDA-Public Use
  Company Number: US-JNJFOC-20090204376

PATIENT
  Sex: Female
  Weight: 58.97 kg

DRUGS (8)
  1. REMICADE [Suspect]
     Route: 042
  2. REMICADE [Suspect]
     Route: 042
  3. REMICADE [Suspect]
     Indication: BEHCET'S SYNDROME
     Route: 042
  4. OXYCONTIN [Concomitant]
  5. LEVOTHYROXINE SODIUM [Concomitant]
     Indication: THYROID DISORDER
  6. AMYTRIPTILINE [Concomitant]
     Indication: INSOMNIA
  7. AMBIEN [Concomitant]
     Indication: INSOMNIA
  8. PREVPAC [Concomitant]
     Indication: HELICOBACTER INFECTION

REACTIONS (9)
  - AMNESIA [None]
  - ASTHENIA [None]
  - CACHEXIA [None]
  - DISORIENTATION [None]
  - HYPOAESTHESIA [None]
  - MELANOCYTIC NAEVUS [None]
  - MUSCLE CONTRACTIONS INVOLUNTARY [None]
  - PARAESTHESIA [None]
  - THERAPEUTIC RESPONSE DECREASED [None]
